FAERS Safety Report 9157281 (Version 1)
Quarter: 2013Q1

REPORT INFORMATION
  Report Type: Spontaneous
  Country: BR (occurrence: None)
  Receive Date: 20130212
  Receipt Date: 20130212
  Transmission Date: 20140127
  Serious: Yes (Other)
  Sender: FDA-Public Use
  Company Number: 2013P1001977

PATIENT
  Age: 82 Year
  Sex: 0

DRUGS (2)
  1. DIGOXIN [Suspect]
  2. FUROSEMIDE [Suspect]

REACTIONS (2)
  - Arrhythmia [None]
  - Drug interaction [None]
